FAERS Safety Report 7920824-3 (Version None)
Quarter: 2011Q4

REPORT INFORMATION
  Report Type: 
  Country: None (occurrence: None)
  Receive Date: 20111117
  Receipt Date: 20110719
  Transmission Date: 20120403
  Serious: No
  Sender: FDA-Public Use
  Company Number: US-GLAXOSMITHKLINE-A0938049A

PATIENT
  Age: 62 Year
  Sex: Male
  Weight: 110.9 kg

DRUGS (4)
  1. VOTRIENT [Suspect]
     Indication: PRODUCT USED FOR UNKNOWN INDICATION
     Dosage: 800MG PER DAY
     Dates: start: 20110501
  2. MULTIPLE CONCURRENT [Concomitant]
  3. LOVENOX [Concomitant]
  4. AMBIEN [Concomitant]

REACTIONS (6)
  - AGEUSIA [None]
  - NAUSEA [None]
  - DECREASED APPETITE [None]
  - HEADACHE [None]
  - BLOOD PRESSURE INCREASED [None]
  - DIARRHOEA [None]
